FAERS Safety Report 5445360-8 (Version None)
Quarter: 2007Q3

REPORT INFORMATION
  Report Type: 
  Country: None (occurrence: None)
  Receive Date: 20070906
  Receipt Date: 20070521
  Transmission Date: 20080115
  Serious: No
  Sender: FDA-Public Use
  Company Number: A0652162A

PATIENT
  Age: 51 Year
  Sex: Male

DRUGS (11)
  1. REQUIP [Suspect]
     Indication: RESTLESS LEGS SYNDROME
     Dosage: 1MG PER DAY
     Route: 048
     Dates: end: 20070201
  2. UNKNOWN MEDICATION [Concomitant]
  3. DIOVAN [Concomitant]
  4. HYDROCHLOROTHIAZIDE [Concomitant]
  5. HYDROCHLOROTHIAZIDE [Concomitant]
  6. ALOPURINOL [Concomitant]
  7. ATIVAN [Concomitant]
  8. CITALOPRAM HYDROBROMIDE [Concomitant]
  9. AMITRIPTYLINE HCL [Concomitant]
  10. MEDOLEXIN [Concomitant]
  11. ZANAFLEX [Concomitant]

REACTIONS (2)
  - ABNORMAL SLEEP-RELATED EVENT [None]
  - ADVERSE EVENT [None]
